FAERS Safety Report 5413622-6 (Version None)
Quarter: 2007Q3

REPORT INFORMATION
  Report Type: 
  Country: None (occurrence: None)
  Receive Date: 20070814
  Receipt Date: 20070225
  Transmission Date: 20080115
  Serious: No
  Sender: FDA-Public Use
  Company Number: US-BRISTOL-MYERS SQUIBB COMPANY-13706288

PATIENT

DRUGS (1)
  1. GLYBURIDE AND METFORMIN HCL [Suspect]
     Dosage: 5MG/500MG

REACTIONS (1)
  - STOMACH DISCOMFORT [None]
